FAERS Safety Report 8557328 (Version 2)
Quarter: 2012Q4

REPORT INFORMATION
  Report Type: Report from Study
  Country: FR (occurrence: FR)
  Receive Date: 20120511
  Receipt Date: 20120914
  Transmission Date: 20130627
  Serious: Yes (Hospitalization, Other)
  Sender: FDA-Public Use
  Company Number: FR-MILLENNIUM PHARMACEUTICALS, INC.-2012-03102

PATIENT

DRUGS (16)
  1. VELCADE [Suspect]
     Indication: MULTIPLE MYELOMA
     Dosage: UNK
     Route: 065
     Dates: start: 20110906, end: 20111201
  2. REVLIMID [Concomitant]
     Indication: MULTIPLE MYELOMA
     Dosage: UNK
     Dates: start: 20120217, end: 20120502
  3. DEXAMETHASONE [Concomitant]
     Indication: MULTIPLE MYELOMA
     Dosage: UNK
     Dates: start: 20110906, end: 20120502
  4. DEXAMETHASONE [Concomitant]
     Dosage: UNK
     Dates: start: 20120217
  5. ZELITREX                           /01269701/ [Concomitant]
     Dosage: UNK
     Dates: start: 20110906
  6. ATENOLOL [Concomitant]
     Dosage: UNK
     Dates: start: 20111014
  7. MONO-TILDIEM [Concomitant]
     Dosage: UNK
     Dates: start: 20111014
  8. FUROSEMIDE [Concomitant]
     Dosage: UNK
     Dates: start: 20111014
  9. PERINDOPRIL [Concomitant]
     Dosage: UNK
     Dates: start: 20111014
  10. TAHOR [Concomitant]
     Dosage: UNK
     Dates: start: 20111014
  11. STILNOX                            /00914901/ [Concomitant]
     Dosage: UNK
     Dates: start: 20111014
  12. KARDEGIC                           /00002703/ [Concomitant]
  13. ZYLORIC                            /00003301/ [Concomitant]
     Dosage: UNK
     Dates: start: 20111014
  14. NEORECORMON [Concomitant]
     Dosage: UNK
     Dates: start: 20120117
  15. CORTANCYL [Concomitant]
     Dosage: UNK
     Dates: start: 201204, end: 201204
  16. AERIUS                             /01398501/ [Concomitant]
     Dosage: UNK
     Dates: start: 201204, end: 201204

REACTIONS (1)
  - Palpitations [Not Recovered/Not Resolved]
